FAERS Safety Report 4369767-5 (Version None)
Quarter: 2004Q2

REPORT INFORMATION
  Report Type: 
  Country: None (occurrence: None)
  Receive Date: 20040528
  Receipt Date: 20040521
  Transmission Date: 20050107
  Serious: Yes (Death)
  Sender: FDA-Public Use
  Company Number: 2004UW08980

PATIENT
  Age: 55 Year
  Sex: Female

DRUGS (17)
  1. IRESSA [Suspect]
     Indication: NON-SMALL CELL LUNG CANCER STAGE IV
     Dosage: 250 MG QD PO
     Route: 048
     Dates: start: 20040408, end: 20040424
  2. CELECOXIB [Concomitant]
  3. PULMICORT [Concomitant]
  4. PREDNISONE [Concomitant]
  5. LEVAQUIN [Concomitant]
  6. PREMARIN [Concomitant]
  7. LASIX [Concomitant]
  8. PROZAC [Concomitant]
  9. XANAX [Concomitant]
  10. RHINOCORT [Concomitant]
  11. COMBIVENT [Concomitant]
  12. FLORATIL [Concomitant]
  13. LANTUS [Concomitant]
  14. ACTONEL [Concomitant]
  15. XOPENEX [Concomitant]
  16. ASPIRIN [Concomitant]
  17. CLOZARIL [Concomitant]

REACTIONS (6)
  - ASPARTATE AMINOTRANSFERASE INCREASED [None]
  - BLOOD ALKALINE PHOSPHATASE INCREASED [None]
  - CARDIAC ARREST [None]
  - PNEUMONITIS [None]
  - RESPIRATORY FAILURE [None]
  - STRESS SYMPTOMS [None]
